FAERS Safety Report 26206747 (Version 1)
Quarter: 2025Q4

REPORT INFORMATION
  Report Type: Spontaneous
  Country: IN (occurrence: IN)
  Receive Date: 20251229
  Receipt Date: 20251229
  Transmission Date: 20260118
  Serious: Yes (Death, Other)
  Sender: RANBAXY
  Company Number: IN-SUN PHARMACEUTICAL INDUSTRIES INC-2025R1-543573

PATIENT

DRUGS (2)
  1. DEXAMETHASONE [Suspect]
     Active Substance: DEXAMETHASONE
     Indication: Immune-mediated myocarditis
     Dosage: UNK
     Route: 064
  2. HUMAN IMMUNOGLOBULIN G [Suspect]
     Active Substance: HUMAN IMMUNOGLOBULIN G
     Indication: Immune-mediated myocarditis
     Dosage: 1 G/KG
     Route: 033

REACTIONS (2)
  - Foetal exposure during pregnancy [Fatal]
  - Pneumonia [Fatal]
